FAERS Safety Report 6338550-3 (Version None)
Quarter: 2009Q3

REPORT INFORMATION
  Report Type: 
  Country: None (occurrence: None)
  Receive Date: 20090901
  Receipt Date: 20090820
  Transmission Date: 20100115
  Serious: Yes (Hospitalization, Other)
  Sender: FDA-Public Use
  Company Number: ADR16962009

PATIENT
  Age: 33 Year
  Sex: Female

DRUGS (5)
  1. TOPIRAMATE [Suspect]
     Dosage: ORAL
     Route: 048
     Dates: start: 20090813, end: 20090817
  2. DICIOFENAC [Concomitant]
  3. FERROUS SULFATE TAB [Concomitant]
  4. IMIGRAN [Concomitant]
  5. PROPRANOLOL [Concomitant]

REACTIONS (3)
  - ANGIOEDEMA [None]
  - HYPERVENTILATION [None]
  - PARAESTHESIA [None]
